FAERS Safety Report 7403155-X (Version None)
Quarter: 2011Q2

REPORT INFORMATION
  Report Type: 
  Country: None (occurrence: None)
  Receive Date: 20110408
  Receipt Date: 20110404
  Transmission Date: 20111010
  Serious: Yes (Life-Threatening, Hospitalization, Other)
  Sender: FDA-Public Use
  Company Number: FR-PFIZER INC-2011042629

PATIENT
  Age: 56 Year
  Sex: Male
  Weight: 70 kg

DRUGS (6)
  1. TAHOR [Suspect]
     Indication: HYPERTENSION
  2. TAHOR [Suspect]
     Indication: HYPERCHOLESTEROLAEMIA
     Dosage: UNK
     Dates: start: 20101222, end: 20110104
  3. LASIX [Concomitant]
     Indication: HYPERTENSION
     Dosage: UNK
     Dates: start: 20091201
  4. IRBESARTAN [Concomitant]
     Indication: HYPERTENSION
     Dosage: UNK
     Dates: start: 20091201
  5. KARDEGIC [Concomitant]
     Indication: RENAL DYSPLASIA
     Dosage: UNK
     Dates: start: 20090101
  6. NEBIVOLOL [Concomitant]
     Indication: HYPERTENSION
     Dosage: UNK
     Dates: start: 20091201

REACTIONS (3)
  - HEPATIC ENCEPHALOPATHY [None]
  - JAUNDICE [None]
  - HEPATITIS [None]
